FAERS Safety Report 20699749 (Version 1)
Quarter: 2022Q2

REPORT INFORMATION
  Report Type: Spontaneous
  Country: BR (occurrence: BR)
  Receive Date: 20220412
  Receipt Date: 20220412
  Transmission Date: 20220721
  Serious: Yes (Death)
  Sender: FDA-Public Use
  Company Number: BR-BoehringerIngelheim-2022-BI-164088

PATIENT
  Age: 62 Year
  Sex: Female

DRUGS (1)
  1. ALTEPLASE [Suspect]
     Active Substance: ALTEPLASE
     Indication: Ischaemic stroke
     Dosage: MOST RECENT DOSE ON 10/JAN/2022.
     Route: 065
     Dates: start: 20220110

REACTIONS (1)
  - Death [Fatal]

NARRATIVE: CASE EVENT DATE: 20220118
